FAERS Safety Report 15459662 (Version 2)
Quarter: 2018Q4

REPORT INFORMATION
  Report Type: Report from Study
  Country: None (occurrence: CA)
  Receive Date: 20181003
  Receipt Date: 20181026
  Transmission Date: 20190204
  Serious: Yes (Hospitalization, Other)
  Sender: FDA-Public Use
  Company Number: CA-ABBVIE-18K-028-2504045-00

PATIENT
  Age: 33 Year
  Sex: Female

DRUGS (1)
  1. HUMIRA [Suspect]
     Active Substance: ADALIMUMAB
     Indication: CROHN^S DISEASE
     Route: 058
     Dates: start: 20180823, end: 20180923

REACTIONS (6)
  - Chills [Unknown]
  - Intestinal perforation [Unknown]
  - Asthenia [Unknown]
  - Malaise [Unknown]
  - Escherichia bacteraemia [Unknown]
  - Intestinal resection [Unknown]

NARRATIVE: CASE EVENT DATE: 2018
